FAERS Safety Report 5594451-X (Version None)
Quarter: 2008Q1

REPORT INFORMATION
  Report Type: 
  Country: None (occurrence: None)
  Receive Date: 20080117
  Receipt Date: 20071217
  Transmission Date: 20080703
  Serious: No
  Sender: FDA-Public Use
  Company Number: US-BAYER-200713003BWH

PATIENT
  Age: 60 Year
  Sex: Female

DRUGS (8)
  1. CIPRO [Suspect]
     Indication: URINARY TRACT INFECTION
     Dosage: TOTAL DAILY DOSE: 2000 MG  UNIT DOSE: 1000 MG
     Route: 048
     Dates: start: 20070826
  2. AVELOX [Suspect]
     Indication: URINARY TRACT INFECTION
     Dosage: TOTAL DAILY DOSE: 400 MG  UNIT DOSE: 400 MG
     Route: 048
     Dates: start: 20070829
  3. PHENERGAN HCL [Concomitant]
     Indication: NAUSEA
  4. MECLOFEN [Concomitant]
     Dosage: UNIT DOSE: 25 MG
  5. LORAZEPAM [Concomitant]
  6. ZANTAC [Concomitant]
  7. BENTYL [Concomitant]
  8. TYLENOL [Concomitant]

REACTIONS (9)
  - ABDOMINAL PAIN [None]
  - ASTHENIA [None]
  - DIPLEGIA [None]
  - DIZZINESS [None]
  - GAIT DISTURBANCE [None]
  - MALAISE [None]
  - MUSCULAR WEAKNESS [None]
  - NECK PAIN [None]
  - SENSATION OF HEAVINESS [None]
